FAERS Safety Report 5857405-1 (Version None)
Quarter: 2008Q3

REPORT INFORMATION
  Report Type: 
  Country: None (occurrence: None)
  Receive Date: 20080825
  Receipt Date: 20080825
  Transmission Date: 20090109
  Serious: Yes (Hospitalization)
  Sender: FDA-Public Use
  Company Number: None

PATIENT
  Age: 60 Year
  Sex: Female
  Weight: 83.4619 kg

DRUGS (1)
  1. BYETTA [Suspect]
     Dosage: 10 MG  2XDAILY  SQ
     Route: 058
     Dates: start: 20050501, end: 20080725

REACTIONS (1)
  - UNEVALUABLE EVENT [None]
